FAERS Safety Report 14718722 (Version 1)
Quarter: 2018Q2

REPORT INFORMATION
  Report Type: Report from Study
  Country: US (occurrence: US)
  Receive Date: 20180405
  Receipt Date: 20180405
  Transmission Date: 20180711
  Serious: No
  Sender: FDA-Public Use
  Company Number: PHEH2018US012973

PATIENT
  Sex: Female

DRUGS (1)
  1. ENTRESTO [Suspect]
     Active Substance: SACUBITRIL\VALSARTAN
     Indication: EJECTION FRACTION ABNORMAL
     Route: 065

REACTIONS (4)
  - Blood cholesterol abnormal [Unknown]
  - Dyspnoea [Unknown]
  - Hypotension [Unknown]
  - Poor quality sleep [Unknown]
